FAERS Safety Report 17455995 (Version 2)
Quarter: 2020Q1

REPORT INFORMATION
  Report Type: Spontaneous
  Country: DE (occurrence: DE)
  Receive Date: 20200225
  Receipt Date: 20200317
  Transmission Date: 20200409
  Serious: Yes (Hospitalization, Other)
  Sender: FDA-Public Use
  Company Number: DE-ASTRAZENECA-2020SE26445

PATIENT
  Age: 929 Month
  Sex: Male

DRUGS (5)
  1. VESIKUR [Concomitant]
     Active Substance: SOLIFENACIN SUCCINATE
     Route: 065
     Dates: start: 2018, end: 2018
  2. CRESTOR [Suspect]
     Active Substance: ROSUVASTATIN CALCIUM
     Indication: BLOOD CHOLESTEROL INCREASED
     Route: 048
  3. DUODART [Concomitant]
     Active Substance: DUTASTERIDE\TAMSULOSIN
     Indication: PROSTATOMEGALY
     Route: 048
     Dates: start: 201801, end: 201901
  4. TAMSULOSIN [Concomitant]
     Active Substance: TAMSULOSIN
     Route: 048
     Dates: end: 201901
  5. CRESTOR [Suspect]
     Active Substance: ROSUVASTATIN CALCIUM
     Indication: HYPERCHOLESTEROLAEMIA
     Route: 048

REACTIONS (6)
  - Dry mouth [Unknown]
  - Dysgeusia [Unknown]
  - Prostatic specific antigen increased [Unknown]
  - Hepatic steatosis [Unknown]
  - Prostatomegaly [Unknown]
  - Dry throat [Unknown]

NARRATIVE: CASE EVENT DATE: 201904
